FAERS Safety Report 25959215 (Version 1)
Quarter: 2025Q4

REPORT INFORMATION
  Report Type: Spontaneous
  Country: EU (occurrence: EU)
  Receive Date: 20251025
  Receipt Date: 20251025
  Transmission Date: 20260118
  Serious: Yes (Other)
  Sender: TEVA
  Company Number: None

PATIENT
  Age: 60 Year
  Sex: Female

DRUGS (9)
  1. ATORVASTATIN [Suspect]
     Active Substance: ATORVASTATIN
     Indication: Hypercholesterolaemia
     Dosage: ATORVASTATIN ^TEVA^
     Route: 048
     Dates: start: 20140728, end: 2025
  2. Ezetimib ^Actavis^ [Concomitant]
     Indication: Hypercholesterolaemia
     Route: 065
     Dates: start: 20231128
  3. Selexid [Concomitant]
     Indication: Urinary tract infection
     Route: 065
     Dates: start: 20250319, end: 20250323
  4. BETAMETHASONE DIPROPIONATE\BETAMETHASONE SODIUM PHOSPHATE [Concomitant]
     Active Substance: BETAMETHASONE DIPROPIONATE\BETAMETHASONE SODIUM PHOSPHATE
     Indication: Arthropathy
     Route: 065
     Dates: start: 20241018
  5. Hjertemagnyl [Concomitant]
     Indication: Thrombosis prophylaxis
     Route: 065
     Dates: start: 20230912
  6. ACETAMINOPHEN [Concomitant]
     Active Substance: ACETAMINOPHEN
     Indication: Pain
     Dosage: DOSAGE: 1000 MG IN THE MORNING AS NECESSARY AND 1000 MG AT NIGHT AS NECESSARY.
     Route: 065
  7. Carvedilol ^KRKA^ [Concomitant]
     Indication: Cardiac disorder
     Route: 065
     Dates: start: 20230914
  8. PANTOPRAZOLE SODIUM [Concomitant]
     Active Substance: PANTOPRAZOLE SODIUM
     Indication: Prophylaxis
     Dosage: STRENGTH: 20 MG.
     Route: 065
     Dates: start: 20240105
  9. AMOXICILLIN\CLAVULANIC ACID [Concomitant]
     Active Substance: AMOXICILLIN\CLAVULANIC ACID
     Indication: Prophylaxis
     Dosage: STRENGTH: 500 MG + 125 MG. AMOXICILLIN/CLAVULANIC ACID ^2CARE4^
     Route: 065
     Dates: start: 20241203, end: 20241207

REACTIONS (1)
  - Hepatotoxicity [Unknown]
